FAERS Safety Report 8365338-4 (Version None)
Quarter: 2012Q2

REPORT INFORMATION
  Report Type: 
  Country: None (occurrence: None)
  Receive Date: 20120516
  Receipt Date: 20120515
  Transmission Date: 20120825
  Serious: Yes (Hospitalization, Other)
  Sender: FDA-Public Use
  Company Number: US-ROXANE LABORATORIES, INC.-2012-RO-01262RO

PATIENT
  Sex: Male

DRUGS (26)
  1. TYLENOL (CAPLET) [Concomitant]
  2. HYDRALAZINE HCL [Concomitant]
  3. NOVOLOG [Concomitant]
  4. ISOSORBIDE DINITRATE [Concomitant]
  5. NORVASC [Concomitant]
  6. LASIX [Concomitant]
     Dates: start: 20120127
  7. ELOTUZUMAB [Suspect]
     Indication: MULTIPLE MYELOMA
     Route: 042
     Dates: start: 20120319, end: 20120322
  8. LENALIDOMIDE [Suspect]
     Indication: MULTIPLE MYELOMA
     Dosage: 15 MG
     Route: 048
     Dates: start: 20120319, end: 20120322
  9. LIPITOR [Concomitant]
  10. LANOXIN [Concomitant]
  11. LYRICA [Concomitant]
  12. HYTRIN [Concomitant]
  13. DEXAMETHASONE [Suspect]
     Indication: MULTIPLE MYELOMA
     Dosage: 4 MG
     Route: 048
     Dates: start: 20120319, end: 20120322
  14. CEFEPIME [Concomitant]
     Dates: start: 20120328
  15. CLONIDINE [Concomitant]
  16. COLACE [Concomitant]
  17. PLAVIX [Concomitant]
  18. HYDROCODONE BITARTRATE + ACETAMINOPHEN [Concomitant]
  19. HEPARIN [Concomitant]
  20. VANCOMYCIN [Concomitant]
     Dates: start: 20120326, end: 20120327
  21. AZITHROMYCIN [Concomitant]
     Dates: start: 20120320, end: 20120320
  22. CEFTRIAXONE SODIUM [Concomitant]
     Dates: start: 20120320, end: 20120320
  23. ASPIRIN [Concomitant]
  24. OMEPRAZOLE [Concomitant]
  25. VESICARE [Concomitant]
     Dates: start: 20120127
  26. SENNA-MINT WAF [Concomitant]

REACTIONS (6)
  - PYREXIA [None]
  - DIABETES MELLITUS [None]
  - GOUT [None]
  - COUGH [None]
  - SKIN ULCER [None]
  - SOFT TISSUE INFECTION [None]
